FAERS Safety Report 5131485-3 (Version None)
Quarter: 2006Q4

REPORT INFORMATION
  Report Type: 
  Country: None (occurrence: None)
  Receive Date: 20061020
  Receipt Date: 20060922
  Transmission Date: 20070319
  Serious: Yes (Disabling)
  Sender: FDA-Public Use
  Company Number: FR-SANOFI-SYNTHELABO-A01200607921

PATIENT
  Sex: Male
  Weight: 78.7 kg

DRUGS (4)
  1. VASTEN [Suspect]
     Indication: HYPERCHOLESTEROLAEMIA
     Route: 048
     Dates: start: 20020322, end: 20060919
  2. TENORMIN [Concomitant]
     Indication: ANGINA PECTORIS
     Route: 065
     Dates: start: 20011126
  3. ASPIRIN [Concomitant]
     Indication: ANGINA PECTORIS
     Route: 065
     Dates: start: 20011126
  4. PLAVIX [Suspect]
     Indication: STENT PLACEMENT
     Route: 048
     Dates: start: 20060818

REACTIONS (6)
  - ALANINE AMINOTRANSFERASE INCREASED [None]
  - ASPARTATE AMINOTRANSFERASE INCREASED [None]
  - BLOOD CREATINE PHOSPHOKINASE INCREASED [None]
  - MUSCULAR WEAKNESS [None]
  - MYALGIA [None]
  - TRANSAMINASES INCREASED [None]
